FAERS Safety Report 5048645-2 (Version None)
Quarter: 2006Q3

REPORT INFORMATION
  Report Type: 
  Country: None (occurrence: None)
  Receive Date: 20060712
  Receipt Date: 20060629
  Transmission Date: 20061208
  Serious: Yes (Hospitalization)
  Sender: FDA-Public Use
  Company Number: US-KINGPHARMUSA00001-K200600846

PATIENT
  Age: 75 Year
  Sex: Male

DRUGS (7)
  1. ALTACE [Suspect]
     Indication: PROPHYLAXIS
     Route: 048
     Dates: start: 20020926, end: 20060303
  2. MICARDIS [Suspect]
     Indication: PROPHYLAXIS
     Route: 048
     Dates: start: 20020926
  3. INSULIN [Concomitant]
  4. HYDROCHLOROTHIAZIDE [Concomitant]
  5. AMLODIPINE [Concomitant]
  6. METFORMIN [Concomitant]
  7. GLIBENCLAMIDE [Concomitant]

REACTIONS (3)
  - ACUTE MYELOID LEUKAEMIA [None]
  - ASTHENIA [None]
  - DIZZINESS [None]
